FAERS Safety Report 9501392 (Version 1)
Quarter: 2013Q1

REPORT INFORMATION
  Report Type: Spontaneous
  Country: GB (occurrence: None)
  Receive Date: 20130225
  Receipt Date: 20130225
  Transmission Date: 20140127
  Serious: No
  Sender: FDA-Public Use
  Company Number: 2012-542

PATIENT
  Age: 63 Year
  Sex: Female
  Weight: 69.9 kg

DRUGS (10)
  1. PRIALT [Suspect]
     Dosage: PRIMING BOLUS, INTRATHECAL
     Dates: start: 2009, end: 2009
  2. MORPHINE SULFATE (MORPHINE SULFATE) INJECTION [Suspect]
     Dosage: 0.04MG, ONCE/HOUR, INTRATHECAL
     Dates: start: 20091021, end: 20091217
  3. BUPIVACAINE [Suspect]
     Dosage: 0.125MG, ONCE/HOUR, INTRATHECAL
     Dates: start: 20091021, end: 20091217
  4. OXYCONTIN (OXYCODONE HYDROCHLORIDE) [Concomitant]
  5. FENTANYL (FENTANYL) [Concomitant]
  6. GABAPENTIN ALMUS (GABAPENTIN) [Concomitant]
  7. AMITRIPTYLINE (AMITRIPTYLINE HYDROCHLORIDE) [Concomitant]
  8. PARACETAMOL (PARACETAMOL) [Concomitant]
  9. METHADONE (METHADONE HYDROCHLORIDE) [Concomitant]
  10. FLUOXETINE (FLUOXETINE HYDROCHLORIDE) [Concomitant]

REACTIONS (5)
  - Cellulitis [None]
  - Malignant neoplasm progression [None]
  - Personality change [None]
  - Confusional state [None]
  - Depression [None]
